FAERS Safety Report 7238280-X (Version None)
Quarter: 2011Q1

REPORT INFORMATION
  Report Type: 
  Country: None (occurrence: None)
  Receive Date: 20110121
  Receipt Date: 20110114
  Transmission Date: 20110831
  Serious: Yes (Other)
  Sender: FDA-Public Use
  Company Number: US-PERRIGO-11US000125

PATIENT
  Sex: Male
  Weight: 63.492 kg

DRUGS (2)
  1. ACETAMINOPHEN [Suspect]
     Indication: HEADACHE
     Dosage: 4 TABLETS, WITHIN 2 HOURS
     Route: 048
     Dates: start: 20110105, end: 20110105
  2. ACETAMINOPHEN [Suspect]
     Indication: NASOPHARYNGITIS

REACTIONS (4)
  - FEELING ABNORMAL [None]
  - VOMITING [None]
  - DRUG ADMINISTRATION ERROR [None]
  - UNRESPONSIVE TO STIMULI [None]
